FAERS Safety Report 25643882 (Version 2)
Quarter: 2025Q3

REPORT INFORMATION
  Report Type: Report from Study
  Country: US (occurrence: US)
  Receive Date: 20250805
  Receipt Date: 20250820
  Transmission Date: 20251021
  Serious: Yes (Congenital Anomaly, Other)
  Sender: MYLAN
  Company Number: US-MYLANLABS-2025M1065523

PATIENT

DRUGS (1)
  1. LEVETIRACETAM [Suspect]
     Active Substance: LEVETIRACETAM
     Indication: Epilepsy

REACTIONS (2)
  - Cryptorchism [Unknown]
  - Foetal exposure during pregnancy [Recovered/Resolved]
